FAERS Safety Report 4546721-1 (Version None)
Quarter: 2005Q1

REPORT INFORMATION
  Report Type: 
  Country: None (occurrence: None)
  Receive Date: 20050105
  Receipt Date: 20041202
  Transmission Date: 20050727
  Serious: Yes (Death, Other)
  Sender: FDA-Public Use
  Company Number: 2004233948GB

PATIENT
  Sex: Female

DRUGS (1)
  1. DALTEPARIN (DALTEPARIN) [Suspect]
     Indication: CORONARY ARTERY DISEASE

REACTIONS (2)
  - ABDOMINAL WALL DISORDER [None]
  - HAEMATOMA [None]
